FAERS Safety Report 21787774 (Version 1)
Quarter: 2022Q4

REPORT INFORMATION
  Report Type: Report from Study
  Country: NL (occurrence: NL)
  Receive Date: 20221228
  Receipt Date: 20221228
  Transmission Date: 20230113
  Serious: Yes (Other)
  Sender: FDA-Public Use
  Company Number: None

PATIENT
  Age: 70 Year
  Sex: Female

DRUGS (21)
  1. ROSUVASTATIN CALCIUM [Suspect]
     Active Substance: ROSUVASTATIN CALCIUM
     Indication: Product used for unknown indication
     Dosage: 20 MILLIGRAMS, QD, (AS CA-SALT), 1D1T
  2. XGEVA [Suspect]
     Active Substance: DENOSUMAB
     Indication: Prophylaxis
     Dosage: 120 MILLIGRAM, Q4WK, EXPDT (DOSE 4: 31-MAY-2022 DOSE 5: 31-OCT-2024)
  3. CALCIUM CARBONATE\CHOLECALCIFEROL [Concomitant]
     Active Substance: CALCIUM CARBONATE\CHOLECALCIFEROL
     Dosage: 1.25 800 IU (500 MG CA), QD
  4. CANNABIS SATIVA SUBSP. INDICA TOP [Concomitant]
     Active Substance: CANNABIS SATIVA SUBSP. INDICA TOP
     Dosage: 20 MILLIGRAM PER MILLILITRE, QD
  5. COSMETICS [Concomitant]
     Active Substance: COSMETICS
     Dosage: 10 PERCENT, 2XD
  6. DORZOLAMIDE HYDROCHLORIDE\TIMOLOL MALEATE [Concomitant]
     Active Substance: DORZOLAMIDE HYDROCHLORIDE\TIMOLOL MALEATE
     Dosage: 5 / 20 MG / ML M 0.2 ML Z CONS 1XD 1 DROP
  7. DEXTRAN 70-HYPROMELLOSE [Concomitant]
     Dosage: 1/3 MG/ML FL 15 ML, 1D1DR WHEN NECESSARY 1/3 MG/ML FL 15 ML, 1D1DR WHEN NECESSARY
  8. FULVESTRANT [Concomitant]
     Active Substance: FULVESTRANT
     Dosage: 250MG-5ML (50MG/ML), 1X4W 2INJ
  9. LETROZOLE [Concomitant]
     Active Substance: LETROZOLE
     Dosage: 2.5 MILLIGRAM, QD
  10. LIDOCAINE [Concomitant]
     Active Substance: LIDOCAINE
     Dosage: UNK UNK, QD
  11. MIZOLASTINE [Concomitant]
     Active Substance: MIZOLASTINE
     Dosage: 10 MILLIGRAM, QD
  12. MICONAZOLE [Concomitant]
     Active Substance: MICONAZOLE
     Dosage: 20 MILLIGRAM PER GRAM, 2D
  13. NAPROXEN [Concomitant]
     Active Substance: NAPROXEN
     Dosage: 250 MILLIGRAM, 3D1T
  14. OMEPRAZOLE [Concomitant]
     Active Substance: OMEPRAZOLE
     Dosage: 20 MILLIGRAM, QD
  15. PALBOCICLIB [Concomitant]
     Active Substance: PALBOCICLIB
     Dosage: 100 MILLIGRAM, QD
  16. TRAVOPROST [Concomitant]
     Active Substance: TRAVOPROST
     Dosage: 40 MICROGRAMS PER MILLIGRAM (FL 2.5ML), QD 1D1DR
  17. TRIAMCINOLONE ACETONIDE [Concomitant]
     Active Substance: TRIAMCINOLONE ACETONIDE
     Dosage: QD
  18. XGEVA [Suspect]
     Active Substance: DENOSUMAB
     Indication: Prophylaxis
     Dosage: 120 MILLIGRAM, Q4WK EXPDT (DOSE 4: 31-MAY-2022 DOSE 5: 31-OCT-2024)
     Dates: start: 20190423
  19. XGEVA [Suspect]
     Active Substance: DENOSUMAB
     Indication: Prophylaxis
     Dosage: 120 MILLIGRAM, Q4WK, EXPDT (DOSE 4: 31-MAY-2022 DOSE 5: 31-OCT-2024)
  20. XGEVA [Suspect]
     Active Substance: DENOSUMAB
     Indication: Prophylaxis
     Dosage: 120 MILLIGRAM, Q4WK, EXPDT (DOSE 4: 31-MAY-2022 DOSE 5: 31-OCT-2024)
  21. XGEVA [Suspect]
     Active Substance: DENOSUMAB
     Indication: Prophylaxis
     Dosage: 120 MILLIGRAM, Q4WK, EXPDT (DOSE 4: 31-MAY-2022 DOSE 5: 31-OCT-2024)

REACTIONS (14)
  - Pain in extremity [Not Recovered/Not Resolved]
  - Injection site pain [Unknown]
  - Malaise [Unknown]
  - Basal cell carcinoma [Unknown]
  - Eye movement disorder [Not Recovered/Not Resolved]
  - Cancer pain [Unknown]
  - Dizziness [Unknown]
  - Haemoglobin decreased [Not Recovered/Not Resolved]
  - Erysipelas [Recovered/Resolved]
  - Arthralgia [Not Recovered/Not Resolved]
  - Headache [Not Recovered/Not Resolved]
  - Dyspnoea [Not Recovered/Not Resolved]
  - Discomfort [Unknown]
  - Breast cancer metastatic [Not Recovered/Not Resolved]

NARRATIVE: CASE EVENT DATE: 20190101
